FAERS Safety Report 10014413 (Version 2)
Quarter: 2014Q2

REPORT INFORMATION
  Report Type: Spontaneous
  Country: JP (occurrence: JP)
  Receive Date: 20140317
  Receipt Date: 20140409
  Transmission Date: 20141212
  Serious: Yes (Death, Other)
  Sender: FDA-Public Use
  Company Number: JP-ROCHE-1362587

PATIENT
  Age: 67 Year
  Sex: Female

DRUGS (2)
  1. AVASTIN [Suspect]
     Indication: BREAST CANCER METASTATIC
     Dosage: DAY1 15?REPETITIVE ADMINISTRATION
     Route: 041
     Dates: start: 20120416, end: 20121203
  2. PACLITAXEL [Concomitant]
     Indication: BREAST CANCER METASTATIC
     Dosage: DAY1, 8, AND 15:28?REPETITIVE ADMINISTRATION
     Route: 041

REACTIONS (5)
  - Breast cancer metastatic [Fatal]
  - Pneumothorax [Recovering/Resolving]
  - Metastases to lung [Unknown]
  - Tumour necrosis [Unknown]
  - Hypertension [Recovering/Resolving]
